FAERS Safety Report 24847079 (Version 1)
Quarter: 2025Q1

REPORT INFORMATION
  Report Type: Spontaneous
  Country: US (occurrence: US)
  Receive Date: 20250115
  Receipt Date: 20250115
  Transmission Date: 20250409
  Serious: Yes (Death)
  Sender: STRIDES
  Company Number: US-STRIDES ARCOLAB LIMITED-2025SP000485

PATIENT
  Age: 65 Year
  Sex: Male

DRUGS (2)
  1. SUCRALFATE [Suspect]
     Active Substance: SUCRALFATE
     Indication: Gastric ulcer haemorrhage
     Route: 065
  2. YTTRIUM [Suspect]
     Active Substance: YTTRIUM
     Indication: Rectal cancer metastatic
     Route: 065

REACTIONS (3)
  - Small intestinal obstruction [Fatal]
  - Peritonitis [Fatal]
  - Treatment noncompliance [Unknown]
